FAERS Safety Report 7583433-4 (Version None)
Quarter: 2011Q2

REPORT INFORMATION
  Report Type: 
  Country: None (occurrence: None)
  Receive Date: 20110630
  Receipt Date: 20110621
  Transmission Date: 20111010
  Serious: Yes (Other)
  Sender: FDA-Public Use
  Company Number: US-MYLANLABS-2011S1013054

PATIENT
  Sex: Female

DRUGS (2)
  1. AMNESTEEM [Suspect]
     Dates: start: 20110101, end: 20110101
  2. AMNESTEEM [Suspect]
     Dates: start: 20110101, end: 20110101

REACTIONS (1)
  - SUICIDAL IDEATION [None]
